FAERS Safety Report 7888383-1 (Version None)
Quarter: 2011Q4

REPORT INFORMATION
  Report Type: 
  Country: None (occurrence: None)
  Receive Date: 20111103
  Receipt Date: 20111026
  Transmission Date: 20120403
  Serious: Yes (Other)
  Sender: FDA-Public Use
  Company Number: BR-PFIZER INC-2011250071

PATIENT
  Age: 70 Year
  Sex: Female
  Weight: 45 kg

DRUGS (7)
  1. BROMAZEPAM [Concomitant]
     Indication: SLEEP DISORDER
     Dosage: 6 MG, 1X/DAY
  2. VARENICLINE TARTRATE [Suspect]
     Dosage: UNK
     Route: 048
     Dates: start: 20111007, end: 20111001
  3. XALATAN [Concomitant]
     Indication: GLAUCOMA
     Dosage: ONE DROP IN EACH EYE (3 UG), 1X/DAY
     Route: 047
  4. VARENICLINE TARTRATE [Suspect]
     Indication: SMOKING CESSATION THERAPY
     Dosage: UNK
     Route: 048
     Dates: start: 20110101, end: 20110101
  5. VARENICLINE TARTRATE [Suspect]
     Dosage: 0.5 MG, 2X/DAY
     Route: 048
     Dates: start: 20111001
  6. TIMOLOL [Concomitant]
     Indication: GLAUCOMA
     Dosage: TWICE DAILY
  7. ARGININE ASPARTATE [Concomitant]
     Indication: MEMORY IMPAIRMENT
     Dosage: UNK
     Dates: start: 20110915

REACTIONS (5)
  - LISTLESS [None]
  - HYPERTENSION [None]
  - BLOOD CHOLESTEROL ABNORMAL [None]
  - NAUSEA [None]
  - SOMNOLENCE [None]
